FAERS Safety Report 5378097-4 (Version None)
Quarter: 2007Q3

REPORT INFORMATION
  Report Type: 
  Country: None (occurrence: None)
  Receive Date: 20070702
  Receipt Date: 20070702
  Transmission Date: 20080115
  Serious: Yes (Hospitalization)
  Sender: FDA-Public Use
  Company Number: None

PATIENT
  Age: 67 Year
  Sex: Female
  Weight: 73 kg

DRUGS (10)
  1. WARFARIN SODIUM [Suspect]
     Indication: ATRIAL FIBRILLATION
     Dosage: 1.25MG DAILY
  2. MULTI-VITAMIN [Concomitant]
  3. CLONAZEPAM [Concomitant]
  4. HYZAAR [Concomitant]
  5. HYDROXYZINE [Concomitant]
  6. CYMBALTA [Concomitant]
  7. POTASIUM [Concomitant]
  8. QUININE SULFATE [Concomitant]
  9. VICODIN [Concomitant]
  10. CYCLOBENZAPRINE HCL [Concomitant]

REACTIONS (2)
  - FAECES DISCOLOURED [None]
  - MALLORY-WEISS SYNDROME [None]
